FAERS Safety Report 8536601-9 (Version None)
Quarter: 2012Q3

REPORT INFORMATION
  Report Type: 
  Country: None (occurrence: None)
  Receive Date: 20120725
  Receipt Date: 20120710
  Transmission Date: 20120928
  Serious: Yes (Hospitalization)
  Sender: FDA-Public Use
  Company Number: FR-ROCHE-1086672

PATIENT
  Age: 49 Year
  Sex: Female

DRUGS (6)
  1. PURINETHOL [Suspect]
     Indication: PRODUCT USED FOR UNKNOWN INDICATION
     Route: 048
     Dates: start: 20111115, end: 20111230
  2. VESANOID [Suspect]
     Indication: PRODUCT USED FOR UNKNOWN INDICATION
     Route: 048
     Dates: start: 20111116, end: 20111230
  3. METHOTREXATE [Suspect]
     Dates: start: 20120128
  4. PURINETHOL [Suspect]
     Dates: start: 20120128
  5. METHOTREXATE [Suspect]
     Indication: PRODUCT USED FOR UNKNOWN INDICATION
     Dates: start: 20111115, end: 20111230
  6. VESANOID [Suspect]
     Dates: start: 20120207

REACTIONS (1)
  - PANCYTOPENIA [None]
